FAERS Safety Report 20391706 (Version 2)
Quarter: 2022Q1

REPORT INFORMATION
  Report Type: Spontaneous
  Country: US (occurrence: US)
  Receive Date: 20220128
  Receipt Date: 20220318
  Transmission Date: 20220423
  Serious: Yes (Hospitalization, Other)
  Sender: FDA-Public Use
  Company Number: US-BIOVITRUM-2022US01112

PATIENT
  Age: 59 Year
  Sex: Female

DRUGS (3)
  1. KINERET [Suspect]
     Active Substance: ANAKINRA
     Indication: Cryopyrin associated periodic syndrome
     Route: 058
  2. KINERET [Suspect]
     Active Substance: ANAKINRA
     Route: 058
     Dates: start: 20190615
  3. KINERET [Suspect]
     Active Substance: ANAKINRA
     Route: 058
     Dates: start: 201906

REACTIONS (7)
  - Cryopyrin associated periodic syndrome [Unknown]
  - Condition aggravated [Unknown]
  - COVID-19 [Unknown]
  - Pain [Unknown]
  - Pyrexia [Unknown]
  - Product dose omission issue [Unknown]
  - Off label use [Unknown]

NARRATIVE: CASE EVENT DATE: 20190601
